FAERS Safety Report 14647627 (Version 3)
Quarter: 2018Q1

REPORT INFORMATION
  Report Type: Spontaneous
  Country: US (occurrence: US)
  Receive Date: 20180316
  Receipt Date: 20180330
  Transmission Date: 20180509
  Serious: Yes (Hospitalization)
  Sender: FDA-Public Use
  Company Number: US-GLAXOSMITHKLINE-US2018043234

PATIENT
  Sex: Male
  Weight: 72.11 kg

DRUGS (2)
  1. ANORO ELLIPTA [Suspect]
     Active Substance: UMECLIDINIUM BROMIDE\VILANTEROL TRIFENATATE
     Indication: CHRONIC OBSTRUCTIVE PULMONARY DISEASE
     Dosage: 1 PUFF(S), 1D
     Route: 055
     Dates: start: 201708
  2. ADVAIR DISKUS [Interacting]
     Active Substance: FLUTICASONE PROPIONATE\SALMETEROL XINAFOATE
     Indication: PRODUCT USED FOR UNKNOWN INDICATION
     Dosage: UNK
     Route: 055
     Dates: start: 20170719, end: 20171218

REACTIONS (7)
  - Dyspnoea [Unknown]
  - Drug dose omission [Unknown]
  - Intercepted drug prescribing error [Unknown]
  - Ill-defined disorder [Unknown]
  - Emergency care examination [Unknown]
  - Chronic obstructive pulmonary disease [Unknown]
  - Labelled drug-drug interaction medication error [Unknown]
